FAERS Safety Report 16535637 (Version 4)
Quarter: 2019Q3

REPORT INFORMATION
  Report Type: Spontaneous
  Country: US (occurrence: US)
  Receive Date: 20190705
  Receipt Date: 20190816
  Transmission Date: 20191004
  Serious: No
  Sender: FDA-Public Use
  Company Number: US-PFIZER INC-2019264754

PATIENT
  Age: 59 Year
  Sex: Female
  Weight: 54.43 kg

DRUGS (6)
  1. ESTROGEL [Concomitant]
     Active Substance: ESTRADIOL
     Dosage: UNK (1 PUMP AND RUB IT ON THE SKIN)
     Route: 061
  2. CHANTIX [Suspect]
     Active Substance: VARENICLINE TARTRATE
     Dosage: UNK, 1X/DAY
  3. TESTOSTERONE. [Concomitant]
     Active Substance: TESTOSTERONE
     Dosage: 7 MG, DAILY
  4. PROGESTERONE. [Concomitant]
     Active Substance: PROGESTERONE
     Dosage: 100 MG, UNK
     Route: 048
  5. CHANTIX [Suspect]
     Active Substance: VARENICLINE TARTRATE
     Dosage: UNK, CYCLIC
  6. CHANTIX [Suspect]
     Active Substance: VARENICLINE TARTRATE
     Indication: SMOKING CESSATION THERAPY
     Dosage: 1 MG, DAILY(1 MG, 1 A DAY, BY MOUTH)
     Route: 048

REACTIONS (4)
  - Drug ineffective [Unknown]
  - Stress [Unknown]
  - Intentional product misuse [Unknown]
  - Mental disorder [Unknown]
